APPROVED DRUG PRODUCT: PROMETHAZINE HYDROCHLORIDE
Active Ingredient: PROMETHAZINE HYDROCHLORIDE
Strength: 50MG/ML
Dosage Form/Route: INJECTABLE;INJECTION
Application: A040785 | Product #002
Applicant: WOCKHARDT BIO AG
Approved: Sep 26, 2008 | RLD: No | RS: No | Type: DISCN